FAERS Safety Report 6095905-2 (Version None)
Quarter: 2009Q1

REPORT INFORMATION
  Report Type: 
  Country: None (occurrence: None)
  Receive Date: 20090227
  Receipt Date: 20080703
  Transmission Date: 20090719
  Serious: No
  Sender: FDA-Public Use
  Company Number: A0737269A

PATIENT
  Age: 7 Year
  Sex: Male

DRUGS (2)
  1. LAMICTAL [Suspect]
     Route: 048
     Dates: start: 20071001, end: 20080529
  2. METHYLPHENIDATE [Suspect]
     Indication: ATTENTION DEFICIT/HYPERACTIVITY DISORDER
     Dosage: .5PAT PER DAY
     Route: 062
     Dates: start: 20080512

REACTIONS (7)
  - AGGRESSION [None]
  - DERMATITIS CONTACT [None]
  - DRUG ADMINISTRATION ERROR [None]
  - IRRITABILITY [None]
  - RASH [None]
  - REBOUND EFFECT [None]
  - URTICARIA [None]
